FAERS Safety Report 5831931-3 (Version None)
Quarter: 2008Q3

REPORT INFORMATION
  Report Type: 
  Country: None (occurrence: None)
  Receive Date: 20080804
  Receipt Date: 20080801
  Transmission Date: 20090109
  Serious: Yes (Other)
  Sender: FDA-Public Use
  Company Number: US-BAYER-200821789NA

PATIENT
  Age: 24 Year
  Sex: Female
  Weight: 89 kg

DRUGS (2)
  1. MIRENA [Suspect]
     Indication: CONTRACEPTION
     Route: 015
     Dates: start: 20080227
  2. ZOLOFT [Concomitant]
     Indication: DEPRESSION
     Dates: start: 20080227

REACTIONS (4)
  - IUD MIGRATION [None]
  - POST PROCEDURAL HAEMORRHAGE [None]
  - PROCEDURAL PAIN [None]
  - UTERINE RUPTURE [None]
